FAERS Safety Report 7044602-5 (Version None)
Quarter: 2010Q4

REPORT INFORMATION
  Report Type: 
  Country: None (occurrence: None)
  Receive Date: 20101014
  Receipt Date: 20101007
  Transmission Date: 20110411
  Serious: Yes (Other)
  Sender: FDA-Public Use
  Company Number: ES-BRACCO-000325

PATIENT
  Age: 41 Year
  Sex: Male
  Weight: 99 kg

DRUGS (2)
  1. MULTIHANCE [Suspect]
     Indication: PARTIAL SEIZURES
     Route: 042
     Dates: start: 20100930, end: 20100930
  2. MULTIHANCE [Suspect]
     Indication: NUCLEAR MAGNETIC RESONANCE IMAGING BRAIN
     Route: 042
     Dates: start: 20100930, end: 20100930

REACTIONS (4)
  - BRONCHOSPASM [None]
  - DYSPNOEA [None]
  - FACE OEDEMA [None]
  - URTICARIA [None]
